FAERS Safety Report 12373054 (Version 1)
Quarter: 2016Q2

REPORT INFORMATION
  Report Type: Report from Study
  Country: US (occurrence: US)
  Receive Date: 20160516
  Receipt Date: 20160516
  Transmission Date: 20160815
  Serious: Yes (Other)
  Sender: FDA-Public Use
  Company Number: US-MALLINCKRODT-T201502986

PATIENT
  Age: 47 Year
  Sex: Female
  Weight: 73 kg

DRUGS (26)
  1. MISOPROSTOL. [Concomitant]
     Active Substance: MISOPROSTOL
  2. PLAQUENIL [Concomitant]
     Active Substance: HYDROXYCHLOROQUINE SULFATE
  3. REPOSITORY CORTICOTROPIN INJECTION [Suspect]
     Active Substance: CORTICOTROPIN
     Dosage: 80 UNITS TWICE WEEKLY
     Route: 058
     Dates: start: 20150427
  4. FOLIC ACID. [Concomitant]
     Active Substance: FOLIC ACID
  5. ACIPHEX [Concomitant]
     Active Substance: RABEPRAZOLE SODIUM
  6. PREDNISOLONE. [Concomitant]
     Active Substance: PREDNISOLONE
  7. MAXALT [Concomitant]
     Active Substance: RIZATRIPTAN BENZOATE
  8. ALREX [Concomitant]
     Active Substance: LOTEPREDNOL ETABONATE
  9. LIDODERM [Concomitant]
     Active Substance: LIDOCAINE
  10. NEURONTIN [Concomitant]
     Active Substance: GABAPENTIN
  11. REPOSITORY CORTICOTROPIN INJECTION [Suspect]
     Active Substance: CORTICOTROPIN
     Indication: SYSTEMIC LUPUS ERYTHEMATOSUS
     Dosage: 80 UNITS TWICE WEEKLY
     Dates: start: 20141003, end: 20150101
  12. CARAFATE [Concomitant]
     Active Substance: SUCRALFATE
  13. PLAVIX [Concomitant]
     Active Substance: CLOPIDOGREL BISULFATE
  14. TOPAMAX [Concomitant]
     Active Substance: TOPIRAMATE
  15. VOLTAREN [Concomitant]
     Active Substance: DICLOFENAC SODIUM
  16. ASTELIN [Concomitant]
     Active Substance: AZELASTINE HYDROCHLORIDE
  17. REPOSITORY CORTICOTROPIN INJECTION [Suspect]
     Active Substance: CORTICOTROPIN
     Indication: CENTRAL NERVOUS SYSTEM LUPUS
     Dosage: 80 UNITS TWICE WEEKLY
     Dates: start: 20150219, end: 20150307
  18. REPOSITORY CORTICOTROPIN INJECTION [Suspect]
     Active Substance: CORTICOTROPIN
     Dosage: 40 UNITS ONCE WEEKLY
     Dates: start: 20150307, end: 20150427
  19. KLONOPIN [Concomitant]
     Active Substance: CLONAZEPAM
  20. KEPPRA [Concomitant]
     Active Substance: LEVETIRACETAM
  21. NORVASC [Concomitant]
     Active Substance: AMLODIPINE BESYLATE
  22. PREDNISONE. [Concomitant]
     Active Substance: PREDNISONE
  23. IMURAN [Concomitant]
     Active Substance: AZATHIOPRINE
  24. MELOXICAM. [Concomitant]
     Active Substance: MELOXICAM
  25. ALLEGRA [Concomitant]
     Active Substance: FEXOFENADINE HYDROCHLORIDE
  26. METAXALONE. [Concomitant]
     Active Substance: METAXALONE

REACTIONS (20)
  - Fatigue [Not Recovered/Not Resolved]
  - Mouth ulceration [Not Recovered/Not Resolved]
  - Weight increased [Not Recovered/Not Resolved]
  - Systemic lupus erythematosus [Not Recovered/Not Resolved]
  - Intelligence increased [Not Recovered/Not Resolved]
  - Vulvovaginal pruritus [Recovered/Resolved]
  - Pain in extremity [Not Recovered/Not Resolved]
  - Pain [Not Recovered/Not Resolved]
  - Dyspnoea [Not Recovered/Not Resolved]
  - Complex partial seizures [Not Recovered/Not Resolved]
  - Arthralgia [Not Recovered/Not Resolved]
  - Dry eye [Not Recovered/Not Resolved]
  - Asthenia [Not Recovered/Not Resolved]
  - Headache [Not Recovered/Not Resolved]
  - Vulvovaginal burning sensation [Recovered/Resolved]
  - Visual acuity reduced [Not Recovered/Not Resolved]
  - Incorrect dose administered [Recovered/Resolved]
  - Dizziness [Not Recovered/Not Resolved]
  - Lip ulceration [Not Recovered/Not Resolved]
  - Intentional product use issue [Not Recovered/Not Resolved]

NARRATIVE: CASE EVENT DATE: 2015
